FAERS Safety Report 13614433 (Version 1)
Quarter: 2017Q2

REPORT INFORMATION
  Report Type: Spontaneous
  Country: US (occurrence: US)
  Receive Date: 20170605
  Receipt Date: 20170605
  Transmission Date: 20170830
  Serious: No
  Sender: FDA-Public Use
  Company Number: None

PATIENT
  Age: 59 Year
  Sex: Female

DRUGS (1)
  1. RECLAST [Suspect]
     Active Substance: ZOLEDRONIC ACID
     Indication: OSTEOPOROSIS
     Route: 042

REACTIONS (8)
  - Infusion related reaction [None]
  - Paraesthesia [None]
  - Arthralgia [None]
  - Neuropathy peripheral [None]
  - Abasia [None]
  - Musculoskeletal discomfort [None]
  - Gait disturbance [None]
  - Frustration tolerance decreased [None]

NARRATIVE: CASE EVENT DATE: 20160129
